FAERS Safety Report 22400816 (Version 7)
Quarter: 2023Q4

REPORT INFORMATION
  Report Type: Spontaneous
  Country: US (occurrence: US)
  Receive Date: 20230602
  Receipt Date: 20231010
  Transmission Date: 20240109
  Serious: Yes (Other)
  Sender: FDA-Public Use
  Company Number: US-PFIZER INC-202300206958

PATIENT
  Age: 73 Year
  Sex: Female

DRUGS (1)
  1. IBRANCE [Suspect]
     Active Substance: PALBOCICLIB
     Dosage: 125 MG
     Dates: start: 202307

REACTIONS (7)
  - Cataract [Unknown]
  - Neoplasm progression [Unknown]
  - Full blood count increased [Unknown]
  - Musculoskeletal discomfort [Unknown]
  - Abdominal discomfort [Unknown]
  - Fatigue [Unknown]
  - White blood cell count decreased [Unknown]
